FAERS Safety Report 8605942-9 (Version None)
Quarter: 2012Q3

REPORT INFORMATION
  Report Type: 
  Country: None (occurrence: None)
  Receive Date: 20120820
  Receipt Date: 20120814
  Transmission Date: 20120928
  Serious: Yes (Hospitalization)
  Sender: FDA-Public Use
  Company Number: US-GILEAD-2012-0055365

PATIENT
  Sex: Female

DRUGS (1)
  1. LETAIRIS [Suspect]
     Indication: PRODUCT USED FOR UNKNOWN INDICATION
     Dosage: 10 MG, UNK
     Route: 048
     Dates: start: 20090415

REACTIONS (6)
  - CATHETER SITE HAEMORRHAGE [None]
  - CATHETER SITE SWELLING [None]
  - CATHETER SITE PAIN [None]
  - CATHETER SITE ERYTHEMA [None]
  - CATHETER PLACEMENT [None]
  - ERYTHEMA [None]
